FAERS Safety Report 21097284 (Version 1)
Quarter: 2022Q3

REPORT INFORMATION
  Report Type: Spontaneous
  Country: JP (occurrence: JP)
  Receive Date: 20220719
  Receipt Date: 20220719
  Transmission Date: 20221027
  Serious: Yes (Other)
  Sender: FDA-Public Use
  Company Number: JP-BIOVITRUM-2022JP08698

PATIENT
  Age: 51 Day
  Sex: Male
  Weight: 19 kg

DRUGS (2)
  1. NITISINONE [Suspect]
     Active Substance: NITISINONE
     Indication: Tyrosinaemia
  2. NITISINONE [Suspect]
     Active Substance: NITISINONE

REACTIONS (3)
  - Liver transplant [Unknown]
  - Amino acid level increased [Unknown]
  - Amino acid level increased [Unknown]
